FAERS Safety Report 22084823 (Version 2)
Quarter: 2023Q4

REPORT INFORMATION
  Report Type: Spontaneous
  Country: US (occurrence: US)
  Receive Date: 20230310
  Receipt Date: 20231016
  Transmission Date: 20240110
  Serious: No
  Sender: FDA-Public Use
  Company Number: US-PFIZER INC-202300094584

PATIENT
  Age: 55 Year
  Sex: Female
  Weight: 63.492 kg

DRUGS (3)
  1. PAXLOVID [Suspect]
     Active Substance: NIRMATRELVIR\RITONAVIR
     Indication: COVID-19 treatment
     Dosage: [PF-07321332 300 MG]/[RITONAVIR 100 MG]; 2X/DAY;
     Dates: start: 20230304, end: 20230309
  2. MUCINEX FAST MAX COLD, FLU AND SORE THROAT [Concomitant]
     Dosage: UNK
     Dates: start: 20230228, end: 20230304
  3. MUCINEX NIGHTSHIFT COLD AND FLU [Concomitant]
     Active Substance: ACETAMINOPHEN\DEXTROMETHORPHAN HYDROBROMIDE\TRIPROLIDINE HYDROCHLORIDE
     Dosage: UNK
     Dates: start: 20230228, end: 20230304

REACTIONS (2)
  - Headache [Recovered/Resolved]
  - Dizziness [Recovered/Resolved]

NARRATIVE: CASE EVENT DATE: 20230304
